FAERS Safety Report 10361157 (Version 1)
Quarter: 2014Q3

REPORT INFORMATION
  Report Type: Spontaneous
  Country: AU (occurrence: None)
  Receive Date: 20140731
  Receipt Date: 20140731
  Transmission Date: 20150326
  Serious: Yes (Other)
  Sender: FDA-Public Use
  Company Number: AU-SEPTODONT-201402094

PATIENT
  Age: 34 Year
  Sex: Female
  Weight: 60 kg

DRUGS (1)
  1. LIGNOSPAN SPECIAL [Suspect]
     Active Substance: EPINEPHRINE BITARTRATE\LIDOCAINE HYDROCHLORIDE
     Indication: LOCAL ANAESTHESIA
     Dosage: 2 ML TOTAL DENTAL
     Route: 004
     Dates: start: 20131119, end: 20131119

REACTIONS (13)
  - No reaction on previous exposure to drug [None]
  - Headache [None]
  - Mental impairment [None]
  - Asthenia [None]
  - Visual impairment [None]
  - Tremor [None]
  - Accidental overdose [None]
  - Pallor [None]
  - Gait disturbance [None]
  - Injection site pain [None]
  - Toxicity to various agents [None]
  - Speech disorder [None]
  - Cognitive disorder [None]

NARRATIVE: CASE EVENT DATE: 20131119
